FAERS Safety Report 9489706 (Version 2)
Quarter: 2014Q3

REPORT INFORMATION
  Report Type: Spontaneous
  Country: US (occurrence: US)
  Receive Date: 20130829
  Receipt Date: 20140909
  Transmission Date: 20150326
  Serious: Yes (Death, Hospitalization, Disabling, Other)
  Sender: FDA-Public Use
  Company Number: US-GILEAD-2013-0082301

PATIENT
  Age: 69 Year
  Sex: Female
  Weight: 75.78 kg

DRUGS (11)
  1. MIDAZOLAM [Concomitant]
     Active Substance: MIDAZOLAM\MIDAZOLAM HYDROCHLORIDE
  2. LETAIRIS [Suspect]
     Active Substance: AMBRISENTAN
     Indication: PULMONARY ARTERIAL HYPERTENSION
     Route: 048
     Dates: start: 20111024
  3. WARFARIN [Concomitant]
     Active Substance: WARFARIN
  4. ADCIRCA [Suspect]
     Active Substance: TADALAFIL
     Indication: PULMONARY ARTERIAL HYPERTENSION
     Dosage: 20 MG, UNK
     Route: 065
     Dates: start: 20111001, end: 20130625
  5. EPOPROSTENOL [Concomitant]
     Active Substance: EPOPROSTENOL
  6. TYVASO [Suspect]
     Active Substance: TREPROSTINIL
     Indication: PULMONARY ARTERIAL HYPERTENSION
     Dosage: 24 ?G, UNK
     Dates: start: 20120701, end: 20130620
  7. REVATIO [Suspect]
     Active Substance: SILDENAFIL CITRATE
     Indication: PULMONARY ARTERIAL HYPERTENSION
     Dosage: 40 MG, UNK
     Route: 048
     Dates: start: 20130708
  8. FUROSEMIDE. [Concomitant]
     Active Substance: FUROSEMIDE
  9. FENTANYL. [Concomitant]
     Active Substance: FENTANYL
  10. AMIODARONE [Concomitant]
     Active Substance: AMIODARONE
  11. FLONASE                            /00908302/ [Concomitant]

REACTIONS (4)
  - Pneumonia [Recovered/Resolved]
  - Back injury [Unknown]
  - Cardiopulmonary failure [Fatal]
  - Pulmonary embolism [Recovered/Resolved with Sequelae]

NARRATIVE: CASE EVENT DATE: 20130617
